FAERS Safety Report 9744485 (Version 5)
Quarter: 2014Q1

REPORT INFORMATION
  Report Type: Spontaneous
  Country: SE (occurrence: SE)
  Receive Date: 20131210
  Receipt Date: 20140212
  Transmission Date: 20141002
  Serious: Yes (Death, Other)
  Sender: FDA-Public Use
  Company Number: SE-ALLERGAN-1319190US

PATIENT
  Age: 13 Year
  Sex: Male
  Weight: 31 kg

DRUGS (2)
  1. BOTOX [Suspect]
     Indication: MUSCLE SPASMS
     Dosage: UNK UNK, SINGLE
     Dates: start: 20130826, end: 20130826
  2. SYRGAS [Concomitant]

REACTIONS (20)
  - Heart rate increased [Fatal]
  - Respiratory failure [Fatal]
  - Respiratory depression [Not Recovered/Not Resolved]
  - Arrhythmia [Unknown]
  - Muscle atrophy [Unknown]
  - Muscular weakness [Unknown]
  - Blood pressure decreased [Unknown]
  - Respiratory failure [Unknown]
  - Dyspnoea [Recovered/Resolved]
  - Hyperhidrosis [Recovered/Resolved]
  - Urine odour abnormal [Unknown]
  - Pyrexia [Recovered/Resolved]
  - Constipation [Unknown]
  - Diarrhoea [Unknown]
  - Urinary tract infection [Unknown]
  - Respiratory disorder [Unknown]
  - Adverse event [Unknown]
  - Adverse event [Unknown]
  - Muscular weakness [Unknown]
  - Muscle atrophy [Unknown]
